FAERS Safety Report 9648373 (Version 1)
Quarter: 2013Q4

REPORT INFORMATION
  Report Type: Spontaneous
  Country: CA (occurrence: CA)
  Receive Date: 20131028
  Receipt Date: 20131028
  Transmission Date: 20140711
  Serious: Yes (Other)
  Sender: FDA-Public Use
  Company Number: CA-NOVOPROD-390701

PATIENT
  Age: 62 Year
  Sex: Female
  Weight: 79.38 kg

DRUGS (11)
  1. VICTOZA [Suspect]
     Indication: PRODUCT USED FOR UNKNOWN INDICATION
     Dosage: 0.6, MG
     Route: 065
  2. NOVOLIN GE NPH PENFILL [Suspect]
     Indication: PRODUCT USED FOR UNKNOWN INDICATION
     Dosage: UNK
     Route: 065
  3. NOVOLIN GE TORONTO PENFIL [Suspect]
     Indication: PRODUCT USED FOR UNKNOWN INDICATION
     Dosage: UNK
     Route: 065
  4. AMLODIPINE [Concomitant]
     Dosage: UNK
     Route: 065
  5. CRESTOR [Concomitant]
     Dosage: UNK
     Route: 065
  6. HCT [Concomitant]
     Dosage: UNK
     Route: 065
  7. METFORMIN [Concomitant]
     Dosage: UNK
     Route: 065
  8. RABEPRAZOLE [Concomitant]
     Dosage: UNK
     Route: 065
  9. RAMIPRIL [Concomitant]
     Dosage: UNK
     Route: 065
  10. TRAZODONE [Concomitant]
     Dosage: UNK
     Route: 065
  11. VENLAFAXINE XR [Concomitant]
     Dosage: UNK
     Route: 065

REACTIONS (2)
  - Haematemesis [Recovered/Resolved]
  - Blood glucose decreased [Recovered/Resolved]
